FAERS Safety Report 5536387-6 (Version None)
Quarter: 2007Q4

REPORT INFORMATION
  Report Type: 
  Country: None (occurrence: None)
  Receive Date: 20071206
  Receipt Date: 20071127
  Transmission Date: 20080405
  Serious: Yes (Other)
  Sender: FDA-Public Use
  Company Number: US-PFIZER INC-2007099976

PATIENT
  Sex: Female
  Weight: 77.1 kg

DRUGS (5)
  1. NEURONTIN [Suspect]
     Indication: NERVE INJURY
     Route: 048
  2. LYRICA [Suspect]
     Indication: NERVE INJURY
     Route: 048
  3. PERCOCET [Suspect]
  4. EFFEXOR [Concomitant]
  5. ANTIDEPRESSANTS [Concomitant]

REACTIONS (13)
  - CONFUSIONAL STATE [None]
  - DEPRESSION [None]
  - DRUG DEPENDENCE [None]
  - DRUG INEFFECTIVE [None]
  - DRUG INTOLERANCE [None]
  - FEELING ABNORMAL [None]
  - HYSTERECTOMY [None]
  - ILL-DEFINED DISORDER [None]
  - MEMORY IMPAIRMENT [None]
  - MENTAL IMPAIRMENT [None]
  - MULTIPLE SCLEROSIS [None]
  - PRECANCEROUS CELLS PRESENT [None]
  - WEIGHT INCREASED [None]
